FAERS Safety Report 8190871-8 (Version None)
Quarter: 2012Q1

REPORT INFORMATION
  Report Type: 
  Country: None (occurrence: None)
  Receive Date: 20120307
  Receipt Date: 20120227
  Transmission Date: 20120608
  Serious: Yes (Hospitalization)
  Sender: FDA-Public Use
  Company Number: DK-B.I. PHARMACEUTICALS,INC./RIDGEFIELD-2012-SW-00160DB

PATIENT
  Sex: Female

DRUGS (4)
  1. TAFLOTAN [Concomitant]
     Indication: BLOOD PRESSURE INCREASED
     Dosage: 15 MCG
     Dates: start: 20110201
  2. ISOPTIN [Concomitant]
     Indication: CARDIAC DISORDER
     Dosage: 240 MG
     Dates: start: 20111209
  3. PRADAXA [Suspect]
     Indication: ATRIAL FIBRILLATION
     Dosage: 300 MG
     Dates: start: 20111209
  4. AMLODIPINE [Concomitant]
     Indication: HYPERTENSION
     Dosage: 5 MG
     Dates: start: 19990101

REACTIONS (1)
  - SPLENIC RUPTURE [None]
